FAERS Safety Report 4314678-4 (Version None)
Quarter: 2004Q1

REPORT INFORMATION
  Report Type: 
  Country: None (occurrence: None)
  Receive Date: 20040309
  Receipt Date: 20040309
  Transmission Date: 20041129
  Serious: Yes (Hospitalization, Disabling)
  Sender: FDA-Public Use
  Company Number: None

PATIENT
  Age: 57 Year
  Sex: Male
  Weight: 68.0396 kg

DRUGS (5)
  1. PAROXETINE HCL [Suspect]
     Indication: DEPRESSION
     Dosage: 12.5 CR/ 37.5CR 1 TAB DAILY
     Dates: start: 20030910
  2. PAXIL CR [Suspect]
     Dosage: 30MG 2 TABS DAILY
     Dates: start: 20030930
  3. KLONOPIN [Concomitant]
  4. VICODIN [Concomitant]
  5. VIOXX [Concomitant]

REACTIONS (1)
  - SUICIDAL IDEATION [None]
